FAERS Safety Report 16635377 (Version 1)
Quarter: 2019Q3

REPORT INFORMATION
  Report Type: Spontaneous
  Country: DE (occurrence: DE)
  Receive Date: 20190726
  Receipt Date: 20190726
  Transmission Date: 20191004
  Serious: Yes (Hospitalization, Other)
  Sender: FDA-Public Use
  Company Number: DE-ACCORD-146252

PATIENT
  Age: 68 Year
  Sex: Male

DRUGS (14)
  1. ELIQUIS [Suspect]
     Active Substance: APIXABAN
     Indication: PRODUCT USED FOR UNKNOWN INDICATION
     Dosage: 5 MG, 1-0-1-0
  2. PREDNISOLONE. [Concomitant]
     Active Substance: PREDNISOLONE
     Dosage: 10 MG, 1-0-0-0
  3. METOPROLOL. [Concomitant]
     Active Substance: METOPROLOL
     Dosage: 23.75 MG, 1-0-1-0
  4. MIRTAZAPINE. [Concomitant]
     Active Substance: MIRTAZAPINE
     Dosage: 15 MG, 0-0-0-1
  5. FUROSEMIDE. [Suspect]
     Active Substance: FUROSEMIDE
     Indication: PRODUCT USED FOR UNKNOWN INDICATION
     Dosage: 40 MG, 1-1-0-0
  6. IBUPROFEN. [Suspect]
     Active Substance: IBUPROFEN
     Indication: PRODUCT USED FOR UNKNOWN INDICATION
     Dosage: 600 MG, NEED; 0.5-0-0-0
  7. PRAMIPEXOLE/PRAMIPEXOLE DIHYDROCHLORIDE [Concomitant]
     Dosage: 0.25 MG, 0-0-2-0
  8. FLUTICASONE/SALMETEROL [Concomitant]
     Dosage: 36.32- 250 UG, 2-0-2-0, METERED DOSE INHALER
  9. TRAMADOL. [Concomitant]
     Active Substance: TRAMADOL
     Dosage: 100 MG, NEED; 1-0-1-0
  10. ROFLUMILAST. [Concomitant]
     Active Substance: ROFLUMILAST
     Dosage: 500 UG, 1-0-0-0
  11. ACLIDINIUM BROMIDE/FORMOTEROL FUMARATE [Concomitant]
     Dosage: 12-400 UG, 1-0-1-0, METERED DOSE INHALER
  12. XIPAMIDE [Suspect]
     Active Substance: XIPAMIDE
     Indication: PRODUCT USED FOR UNKNOWN INDICATION
     Dosage: 10 MG, 0-1-0-0
  13. PANTOPRAZOLE [Concomitant]
     Active Substance: PANTOPRAZOLE
     Dosage: 40 MG, 1-0-1-0
  14. SALBUTAMOL [Concomitant]
     Active Substance: ALBUTEROL
     Dosage: 0.12 MG, REQUIREMENT, 2 STROKES 2-3 X / DAILY, METERED DOSE INHALER

REACTIONS (5)
  - Haematochezia [Unknown]
  - Hypotension [Unknown]
  - Abdominal pain lower [Unknown]
  - Renal failure [Unknown]
  - Dehydration [Unknown]
